FAERS Safety Report 6166726-7 (Version None)
Quarter: 2009Q2

REPORT INFORMATION
  Report Type: 
  Country: None (occurrence: None)
  Receive Date: 20090424
  Receipt Date: 20090416
  Transmission Date: 20091009
  Serious: Yes (Hospitalization)
  Sender: FDA-Public Use
  Company Number: FR-PFIZER INC-2008032875

PATIENT

DRUGS (6)
  1. MARAVIROC [Suspect]
     Indication: HIV INFECTION
     Dosage: 300 MG, 2X/DAY
     Route: 048
     Dates: start: 20080114, end: 20080128
  2. MARAVIROC [Suspect]
     Dosage: 300 MG, 2X/DAY
     Dates: start: 20080130
  3. RITONAVIR [Concomitant]
     Route: 048
     Dates: start: 20020720
  4. COMBIVIR [Concomitant]
     Route: 048
     Dates: start: 20060123
  5. RALTEGRAVIR [Concomitant]
     Route: 048
     Dates: start: 20080118
  6. COTRIM [Concomitant]
     Route: 048
     Dates: start: 19950601

REACTIONS (1)
  - HYPERTENSION [None]
